FAERS Safety Report 17192564 (Version 1)
Quarter: 2019Q4

REPORT INFORMATION
  Report Type: Spontaneous
  Country: SE (occurrence: SE)
  Receive Date: 20191223
  Receipt Date: 20191223
  Transmission Date: 20200122
  Serious: Yes (Hospitalization, Other)
  Sender: FDA-Public Use
  Company Number: SE-PFIZER INC-2019545840

PATIENT
  Sex: Female

DRUGS (3)
  1. DESLORATADINE. [Suspect]
     Active Substance: DESLORATADINE
     Dosage: 50 MG, UNK
     Route: 048
     Dates: start: 20180519, end: 20180519
  2. PROPAVAN [Suspect]
     Active Substance: PROPIOMAZINE
     Dosage: 250 MG, UNK
     Route: 048
     Dates: start: 20180519, end: 20180519
  3. SERTRALINE HCL [Suspect]
     Active Substance: SERTRALINE HYDROCHLORIDE
     Dosage: UNK (AMOUNT OF 20 AND 20 TIMES)
     Route: 048
     Dates: start: 20180519, end: 20180519

REACTIONS (3)
  - Intentional self-injury [Unknown]
  - Fatigue [Unknown]
  - Intentional overdose [Unknown]

NARRATIVE: CASE EVENT DATE: 20180519
